FAERS Safety Report 23229401 (Version 2)
Quarter: 2023Q4

REPORT INFORMATION
  Report Type: Spontaneous
  Country: US (occurrence: None)
  Receive Date: 20231127
  Receipt Date: 20231221
  Transmission Date: 20240110
  Serious: No
  Sender: FDA-Public Use
  Company Number: 2023A254848

PATIENT

DRUGS (1)
  1. TEZSPIRE [Interacting]
     Active Substance: TEZEPELUMAB-EKKO

REACTIONS (3)
  - Drug interaction [Unknown]
  - Gastritis [Unknown]
  - Blood pressure increased [Unknown]
